FAERS Safety Report 8568971-X (Version None)
Quarter: 2012Q3

REPORT INFORMATION
  Report Type: 
  Country: None (occurrence: None)
  Receive Date: 20120803
  Receipt Date: 20120418
  Transmission Date: 20120928
  Serious: No
  Sender: FDA-Public Use
  Company Number: US-ABBOTT-12P-163-0926733-00

PATIENT
  Sex: Female
  Weight: 83.99 kg

DRUGS (5)
  1. NIASPAN [Suspect]
     Dosage: 2 AT BEDTIME (DOSAGE INCREASED)
     Route: 048
  2. NIASPAN [Suspect]
     Dosage: 3 AT BEDTIME FOR A SHORT TIME (DOSAGE INCREASED)
     Route: 048
  3. ASPIRIN [Concomitant]
     Indication: PRODUCT USED FOR UNKNOWN INDICATION
     Dosage: WITH DOSE OF NIASPAN
     Route: 048
  4. NIASPAN [Suspect]
     Indication: BLOOD CHOLESTEROL ABNORMAL
     Dosage: AT BEDTIME FOR ABOUT 2-3 MONTHS
     Route: 048
  5. NIASPAN [Suspect]
     Dosage: 2 AT BEDTIME (DOSAGE DECREASED)
     Route: 048

REACTIONS (6)
  - PRURITUS [None]
  - FEELING HOT [None]
  - ERYTHEMA [None]
  - COUGH [None]
  - FLUSHING [None]
  - PARAESTHESIA [None]
